FAERS Safety Report 20451291 (Version 1)
Quarter: 2022Q1

REPORT INFORMATION
  Report Type: Spontaneous
  Country: LB (occurrence: LB)
  Receive Date: 20220209
  Receipt Date: 20220209
  Transmission Date: 20220424
  Serious: Yes (Death, Hospitalization, Other)
  Sender: FDA-Public Use
  Company Number: LB-ASTELLAS-2022US004942

PATIENT
  Sex: Male

DRUGS (2)
  1. XTANDI [Suspect]
     Active Substance: ENZALUTAMIDE
     Indication: Prostate cancer
     Dosage: 160 MG (4 CAPSULES PER DAY), ONCE DAILY
     Route: 048
  2. MORPHINE [Concomitant]
     Active Substance: MORPHINE
     Indication: Pain
     Dosage: UNK UNK, 5 TIMES/DAY AND SOMETIMES 6 TIMES/DAY
     Route: 065

REACTIONS (8)
  - Paralysis [Unknown]
  - Malignant spinal cord compression [Unknown]
  - Somnolence [Recovering/Resolving]
  - Oxygen saturation decreased [Recovering/Resolving]
  - Mouth ulceration [Recovering/Resolving]
  - Decreased appetite [Unknown]
  - Dysphagia [Unknown]
  - Malignant neoplasm progression [Fatal]

NARRATIVE: CASE EVENT DATE: 20210101
